FAERS Safety Report 16270520 (Version 2)
Quarter: 2019Q2

REPORT INFORMATION
  Report Type: Spontaneous
  Country: US (occurrence: US)
  Receive Date: 20190503
  Receipt Date: 20190510
  Transmission Date: 20190711
  Serious: Yes (Life-Threatening, Other)
  Sender: FDA-Public Use
  Company Number: US-PFIZER INC-2019187187

PATIENT
  Age: 2 Month
  Sex: Male
  Weight: 4.8 kg

DRUGS (3)
  1. OXYGEN. [Concomitant]
     Active Substance: OXYGEN
     Dosage: UNK
  2. PROPOFOL. [Suspect]
     Active Substance: PROPOFOL
     Indication: ANAESTHESIA
     Dosage: 2 MG/KG, UNK
     Route: 042
  3. SEVOFLURANE. [Suspect]
     Active Substance: SEVOFLURANE
     Indication: ANAESTHESIA
     Dosage: UNK (IN OXYGEN TO A MAXIMUM SEVOFLURANE CONCENTRATION OF 8%)

REACTIONS (4)
  - Electrocardiogram ST segment elevation [Unknown]
  - Hypotension [Unknown]
  - Cardiac arrest [Unknown]
  - Tachycardia [Unknown]
